FAERS Safety Report 9788782 (Version 4)
Quarter: 2014Q1

REPORT INFORMATION
  Report Type: Spontaneous
  Country: US (occurrence: US)
  Receive Date: 20131230
  Receipt Date: 20140130
  Transmission Date: 20141002
  Serious: Yes (Hospitalization)
  Sender: FDA-Public Use
  Company Number: US-B.I. PHARMACEUTICALS,INC./RIDGEFIELD-2012-BP-11015BP

PATIENT
  Age: 73 Year
  Sex: Male
  Weight: 102.06 kg

DRUGS (20)
  1. PRADAXA [Suspect]
     Indication: ATRIAL FIBRILLATION
     Dosage: 300 MG
     Route: 048
     Dates: start: 20110315, end: 20110715
  2. COREG [Concomitant]
     Dosage: 50 MG
     Route: 048
     Dates: start: 2010
  3. POTASSIUM [Concomitant]
     Dosage: 40 MEQ
     Dates: start: 2009
  4. LASIX [Concomitant]
     Dates: start: 2009
  5. NORVASC [Concomitant]
     Dosage: 100 MG
     Route: 048
     Dates: start: 2003
  6. MICARDIS [Concomitant]
     Dosage: 80 MG
     Route: 048
     Dates: start: 2008
  7. JANUMET [Concomitant]
     Dates: start: 2009
  8. NEURONTIN [Concomitant]
     Dosage: 600 MG
     Route: 048
     Dates: start: 2009
  9. HYTRIN [Concomitant]
     Dosage: 5 MG
     Dates: start: 2009
  10. ZANTAC [Concomitant]
     Dosage: 300 MG
     Route: 048
     Dates: start: 2009, end: 2012
  11. SYNTHROID [Concomitant]
     Route: 048
     Dates: start: 2009
  12. LIPITOR [Concomitant]
     Dosage: 80 MG
     Route: 048
     Dates: start: 2009
  13. INSULIN [Concomitant]
     Dates: start: 2009
  14. ASPIRIN [Concomitant]
     Dosage: 325 MG
     Route: 048
     Dates: start: 2011
  15. ZOLPIDEM [Concomitant]
     Dosage: 5 MG
     Route: 048
  16. MAGNESIUM GLUCONATE [Concomitant]
     Dosage: 500 MG
     Route: 048
  17. COLACE [Concomitant]
     Dosage: 200 MG
     Route: 048
  18. LANTUS [Concomitant]
  19. NOVOLIN [Concomitant]
  20. SITAGLIPTIN/METFORMIN [Concomitant]
     Route: 048

REACTIONS (3)
  - Pulmonary haemorrhage [Unknown]
  - Upper gastrointestinal haemorrhage [Unknown]
  - Pneumonia [Unknown]
